FAERS Safety Report 6445144-8 (Version None)
Quarter: 2009Q4

REPORT INFORMATION
  Report Type: 
  Country: None (occurrence: None)
  Receive Date: 20091110
  Receipt Date: 20090825
  Transmission Date: 20100525
  Serious: No
  Sender: FDA-Public Use
  Company Number: 1000008433

PATIENT
  Age: 14 Year
  Sex: Female

DRUGS (8)
  1. SAVELLA [Suspect]
     Indication: DEPRESSION
     Dosage: 50 MG (25 MG, 2 IN 1 D), ORAL
     Route: 048
     Dates: start: 20090821, end: 20090824
  2. SAVELLA [Suspect]
     Indication: ENDOMETRIOSIS
     Dosage: 50 MG (25 MG, 2 IN 1 D), ORAL
     Route: 048
     Dates: start: 20090821, end: 20090824
  3. SAVELLA [Suspect]
     Indication: PAIN
     Dosage: 50 MG (25 MG, 2 IN 1 D), ORAL
     Route: 048
     Dates: start: 20090821, end: 20090824
  4. SAVELLA [Suspect]
     Indication: DEPRESSION
     Dosage: 100 MG (50 MG, 2 IN 1 D), ORAL
     Route: 048
     Dates: start: 20090825, end: 20090827
  5. SAVELLA [Suspect]
     Indication: ENDOMETRIOSIS
     Dosage: 100 MG (50 MG, 2 IN 1 D), ORAL
     Route: 048
     Dates: start: 20090825, end: 20090827
  6. SAVELLA [Suspect]
     Indication: PAIN
     Dosage: 100 MG (50 MG, 2 IN 1 D), ORAL
     Route: 048
     Dates: start: 20090825, end: 20090827
  7. NEXIUM [Concomitant]
  8. NASONEX [Concomitant]

REACTIONS (1)
  - SWELLING [None]
